FAERS Safety Report 25242821 (Version 2)
Quarter: 2025Q2

REPORT INFORMATION
  Report Type: Report from Study
  Country: RO (occurrence: RO)
  Receive Date: 20250427
  Receipt Date: 20250501
  Transmission Date: 20250717
  Serious: Yes (Death, Hospitalization, Other)
  Sender: ABBVIE
  Company Number: RO-ABBVIE-6252995

PATIENT
  Age: 81 Year
  Sex: Male
  Weight: 80 kg

DRUGS (5)
  1. FOSCARBIDOPA\FOSLEVODOPA [Suspect]
     Active Substance: FOSCARBIDOPA\FOSLEVODOPA
     Indication: Parkinson^s disease
     Route: 058
     Dates: start: 20240710, end: 20250429
  2. NORVASC [Concomitant]
     Active Substance: AMLODIPINE BESYLATE
     Indication: Essential hypertension
     Route: 050
     Dates: end: 20250429
  3. BISOPROLOL FUMARATE [Concomitant]
     Active Substance: BISOPROLOL FUMARATE
     Indication: Atrial fibrillation
     Route: 050
     Dates: end: 20250429
  4. NEUPRO [Concomitant]
     Active Substance: ROTIGOTINE
     Indication: Parkinson^s disease
     Route: 062
     Dates: end: 20250429
  5. ELIQUIS [Concomitant]
     Active Substance: APIXABAN
     Indication: Atrial fibrillation
     Route: 050
     Dates: end: 20250429

REACTIONS (3)
  - Cardio-respiratory arrest [Fatal]
  - Pneumonia [Unknown]
  - Condition aggravated [Unknown]

NARRATIVE: CASE EVENT DATE: 20250421
